FAERS Safety Report 11804699 (Version 2)
Quarter: 2016Q2

REPORT INFORMATION
  Report Type: Spontaneous
  Country: JP (occurrence: JP)
  Receive Date: 20151205
  Receipt Date: 20160521
  Transmission Date: 20160815
  Serious: Yes (Other)
  Sender: FDA-Public Use
  Company Number: JP-AMGEN-JPNSP2015129829

PATIENT

DRUGS (2)
  1. G-LASTA [Suspect]
     Active Substance: PEGFILGRASTIM
     Dosage: UNK
     Route: 058
     Dates: start: 20151107, end: 20151107
  2. G-LASTA [Suspect]
     Active Substance: PEGFILGRASTIM
     Indication: COLONY STIMULATING FACTOR PROPHYLAXIS
     Dosage: UNK
     Route: 058
     Dates: start: 201510

REACTIONS (2)
  - Colony stimulating factor therapy [Unknown]
  - Pyrexia [Unknown]

NARRATIVE: CASE EVENT DATE: 20151109
